FAERS Safety Report 23149467 (Version 1)
Quarter: 2023Q4

REPORT INFORMATION
  Report Type: Spontaneous
  Country: GB (occurrence: GB)
  Receive Date: 20231106
  Receipt Date: 20231106
  Transmission Date: 20240110
  Serious: Yes (Hospitalization)
  Sender: FDA-Public Use
  Company Number: GB-ACRAF SpA-2023-032409

PATIENT

DRUGS (7)
  1. XCOPRI [Suspect]
     Active Substance: CENOBAMATE
     Indication: Partial seizures
     Dosage: 25 MILLIGRAM, QD
     Route: 048
     Dates: start: 202304
  2. XCOPRI [Suspect]
     Active Substance: CENOBAMATE
     Dosage: 75 MILLIGRAM, QD
     Route: 048
  3. PHENYTOIN [Suspect]
     Active Substance: PHENYTOIN
     Indication: Product used for unknown indication
     Dosage: 400 MG (200 MG,2 IN 1 D)
     Route: 065
  4. PHENYTOIN [Suspect]
     Active Substance: PHENYTOIN
     Dosage: 250 MG (125 MG,2 IN 1 D)
     Route: 065
  5. LEVETIRACETAM [Concomitant]
     Active Substance: LEVETIRACETAM
     Indication: Product used for unknown indication
     Dosage: 3000 MG (1500 MG,2 IN 1 D)
     Route: 065
  6. LACOSAMIDE [Concomitant]
     Active Substance: LACOSAMIDE
     Indication: Product used for unknown indication
     Dosage: 400 MG (200 MG,2 IN 1 D)
     Route: 065
  7. CLOBAZAM [Concomitant]
     Active Substance: CLOBAZAM
     Indication: Product used for unknown indication
     Dosage: 40 MG (20 MG,2 IN 1 D)
     Route: 065

REACTIONS (3)
  - Drug titration error [Unknown]
  - Toxicity to various agents [Unknown]
  - Drug interaction [Unknown]

NARRATIVE: CASE EVENT DATE: 20230401
